APPROVED DRUG PRODUCT: SKELID
Active Ingredient: TILUDRONATE DISODIUM
Strength: EQ 200MG BASE **Federal Register determination that product was not discontinued or withdrawn for safety or effectiveness reasons**
Dosage Form/Route: TABLET;ORAL
Application: N020707 | Product #001
Applicant: SANOFI AVENTIS US LLC
Approved: Mar 7, 1997 | RLD: Yes | RS: No | Type: DISCN